FAERS Safety Report 5734914-7 (Version None)
Quarter: 2008Q2

REPORT INFORMATION
  Report Type: 
  Country: None (occurrence: None)
  Receive Date: 20080512
  Receipt Date: 20080512
  Transmission Date: 20081010
  Serious: Yes (Death, Hospitalization)
  Sender: FDA-Public Use
  Company Number: None

PATIENT
  Age: 59 Year
  Sex: Male

DRUGS (3)
  1. HEPARIN [Suspect]
     Indication: DIALYSIS
  2. VANCOMYCIN [Suspect]
     Indication: STAPHYLOCOCCAL INFECTION
  3. FLUCONAZOLE [Suspect]
     Indication: CANDIDIASIS

REACTIONS (13)
  - ANTIBODY TEST POSITIVE [None]
  - CEREBRAL INFARCTION [None]
  - DEPRESSED LEVEL OF CONSCIOUSNESS [None]
  - DIALYSIS [None]
  - FACIAL PALSY [None]
  - HEMIPARESIS [None]
  - HEPARIN-INDUCED THROMBOCYTOPENIA [None]
  - HEPATITIS B POSITIVE [None]
  - ILEUS [None]
  - LUNG DISORDER [None]
  - MENTAL STATUS CHANGES [None]
  - MULTI-ORGAN DISORDER [None]
  - RENAL FAILURE [None]
